FAERS Safety Report 9352234 (Version 2)
Quarter: 2013Q3

REPORT INFORMATION
  Report Type: Report from Study
  Country: IE (occurrence: IE)
  Receive Date: 20130617
  Receipt Date: 20130806
  Transmission Date: 20140515
  Serious: Yes (Hospitalization)
  Sender: FDA-Public Use
  Company Number: IE-ASTRAZENECA-2013SE12304

PATIENT
  Age: 5 Month
  Sex: Male

DRUGS (2)
  1. SYNAGIS [Suspect]
     Indication: TRISOMY 21
     Route: 030
     Dates: start: 201210, end: 20130313
  2. SYNAGIS [Suspect]
     Indication: ATRIOVENTRICULAR SEPTAL DEFECT
     Route: 030
     Dates: start: 201210, end: 20130313

REACTIONS (3)
  - Pneumonia [Recovered/Resolved]
  - Respiratory syncytial virus infection [Recovered/Resolved]
  - Viral rhinitis [Recovered/Resolved]
